FAERS Safety Report 11847269 (Version 1)
Quarter: 2015Q4

REPORT INFORMATION
  Report Type: Spontaneous
  Country: US (occurrence: US)
  Receive Date: 20151217
  Receipt Date: 20151217
  Transmission Date: 20160305
  Serious: Yes (Hospitalization)
  Sender: FDA-Public Use
  Company Number: US-ROCHE-227502

PATIENT
  Sex: Female

DRUGS (1)
  1. TAMIFLU [Suspect]
     Active Substance: OSELTAMIVIR PHOSPHATE
     Indication: PRODUCT USED FOR UNKNOWN INDICATION
     Route: 065

REACTIONS (6)
  - Colitis [Unknown]
  - Painful defaecation [None]
  - Circulatory collapse [Recovering/Resolving]
  - Dysuria [Unknown]
  - Large intestinal ulcer [None]
  - Intestinal obstruction [None]

NARRATIVE: CASE EVENT DATE: 200001
